FAERS Safety Report 10232706 (Version 5)
Quarter: 2018Q2

REPORT INFORMATION
  Report Type: Spontaneous
  Country: DE (occurrence: DE)
  Receive Date: 20140612
  Receipt Date: 20180518
  Transmission Date: 20180711
  Serious: Yes (Hospitalization, Other)
  Sender: FDA-Public Use
  Company Number: DE-HORIZON-PRE-0081-2014

PATIENT
  Age: 74 Year
  Sex: Female

DRUGS (2)
  1. LODOTRA 5 MG [Suspect]
     Active Substance: PREDNISONE
     Indication: DISLOCATION OF VERTEBRA
     Dosage: 5 MG BID
     Dates: start: 201005, end: 201006
  2. FALITHROM [Concomitant]
     Active Substance: PHENPROCOUMON

REACTIONS (55)
  - Immune system disorder [Not Recovered/Not Resolved]
  - Arthropathy [Unknown]
  - Chest pain [Unknown]
  - Off label use [Unknown]
  - Ingrowing nail [Unknown]
  - Dry skin [Unknown]
  - Heart rate irregular [Unknown]
  - Pigmentation disorder [Unknown]
  - Vein disorder [Unknown]
  - Infection [Unknown]
  - Hormone level abnormal [Unknown]
  - Sleep disorder [Unknown]
  - Coagulopathy [Unknown]
  - Deep vein thrombosis [Unknown]
  - Dermal cyst [Unknown]
  - Mucous membrane disorder [Unknown]
  - Diverticulitis [Unknown]
  - Joint instability [Not Recovered/Not Resolved]
  - Atrial flutter [Unknown]
  - Diverticulitis [Unknown]
  - Foot deformity [Unknown]
  - Hair growth abnormal [Unknown]
  - Peripheral swelling [Unknown]
  - Impaired quality of life [Unknown]
  - Patellofemoral pain syndrome [Unknown]
  - Meniscus injury [Unknown]
  - Cataract [Unknown]
  - Osteoarthritis [Unknown]
  - Musculoskeletal pain [Unknown]
  - Nasal inflammation [Unknown]
  - Osteoarthritis [Unknown]
  - Oral herpes [Unknown]
  - Bursitis [Unknown]
  - Connective tissue disorder [Unknown]
  - Hypothalamo-pituitary disorder [Unknown]
  - Joint effusion [Unknown]
  - Bronchitis [Recovered/Resolved]
  - Herpes virus infection [Unknown]
  - Cold sweat [Unknown]
  - Productive cough [Unknown]
  - Fungal skin infection [Unknown]
  - Joint noise [Unknown]
  - Body fat disorder [Unknown]
  - Vein disorder [Unknown]
  - General physical health deterioration [Unknown]
  - Pulmonary embolism [Unknown]
  - Pneumonia [Unknown]
  - Impaired healing [Unknown]
  - Skin odour abnormal [Unknown]
  - Pneumonia [Unknown]
  - Tendon rupture [Unknown]
  - Chondropathy [Unknown]
  - Hypothermia [Unknown]
  - Visual acuity reduced [Unknown]
  - Chest discomfort [Unknown]

NARRATIVE: CASE EVENT DATE: 2010
